FAERS Safety Report 7762358-5 (Version None)
Quarter: 2011Q3

REPORT INFORMATION
  Report Type: 
  Country: None (occurrence: None)
  Receive Date: 20110920
  Receipt Date: 20110911
  Transmission Date: 20111222
  Serious: Yes (Hospitalization)
  Sender: FDA-Public Use
  Company Number: ES-ROCHE-801328

PATIENT
  Sex: Male
  Weight: 85 kg

DRUGS (2)
  1. PEGASYS [Suspect]
     Indication: HEPATITIS C
     Route: 058
     Dates: start: 20110801, end: 20110827
  2. RIBAVARIN [Suspect]
     Indication: HEPATITIS C
     Route: 048
     Dates: start: 20110801, end: 20110827

REACTIONS (2)
  - SCHIZOPHRENIA [None]
  - DEPRESSION [None]
